FAERS Safety Report 4914643-X (Version None)
Quarter: 2006Q1

REPORT INFORMATION
  Report Type: 
  Country: None (occurrence: None)
  Receive Date: 20060216
  Receipt Date: 20051003
  Transmission Date: 20060701
  Serious: Yes (Hospitalization, Other)
  Sender: FDA-Public Use
  Company Number: US-MERCK-0510USA02586

PATIENT
  Age: 72 Year
  Sex: Male
  Weight: 90 kg

DRUGS (8)
  1. VIOXX [Suspect]
     Indication: ARTHRITIS
     Route: 048
     Dates: start: 20010701
  2. VIOXX [Suspect]
     Indication: BACK PAIN
     Route: 048
     Dates: start: 20010701
  3. TYLENOL [Concomitant]
     Route: 065
  4. CITALOPRAM HYDROBROMIDE [Concomitant]
     Route: 048
  5. CLONAZEPAM [Concomitant]
     Indication: SLEEP DISORDER
     Route: 048
  6. METOPROLOL TARTRATE [Concomitant]
     Indication: HYPERTENSION
     Route: 048
  7. RANITIDINE HYDROCHLORIDE [Concomitant]
     Indication: PEPTIC ULCER
     Route: 048
  8. SIMVASTATIN [Concomitant]
     Indication: HYPERCHOLESTEROLAEMIA
     Route: 048

REACTIONS (26)
  - AMNESIA [None]
  - ASTHENIA [None]
  - BRADYCARDIA [None]
  - CARPAL TUNNEL SYNDROME [None]
  - CATARACT [None]
  - CHEST PAIN [None]
  - CONTUSION [None]
  - CONVULSION [None]
  - CUBITAL TUNNEL SYNDROME [None]
  - DEHYDRATION [None]
  - DEPRESSION [None]
  - DIABETES MELLITUS [None]
  - DIPLOPIA [None]
  - DIZZINESS [None]
  - EXCORIATION [None]
  - FALL [None]
  - HAEMATOMA [None]
  - HAEMOPTYSIS [None]
  - INGROWING NAIL [None]
  - NEUROFIBROMA [None]
  - NEUROPATHY PERIPHERAL [None]
  - ONYCHOMYCOSIS [None]
  - PAIN IN EXTREMITY [None]
  - POST-TRAUMATIC STRESS DISORDER [None]
  - SYNCOPE [None]
  - VERTIGO [None]
